FAERS Safety Report 23860879 (Version 1)
Quarter: 2024Q2

REPORT INFORMATION
  Report Type: Spontaneous
  Country: US (occurrence: US)
  Receive Date: 20240516
  Receipt Date: 20240516
  Transmission Date: 20240716
  Serious: No
  Sender: FDA-Public Use
  Company Number: US-BIOVITRUM-2024-US-003772

PATIENT
  Age: 60 Year
  Sex: Female

DRUGS (1)
  1. KINERET [Suspect]
     Active Substance: ANAKINRA
     Indication: Product used for unknown indication
     Dosage: ONCE A DAY (QD)
     Route: 058
     Dates: start: 20240207, end: 20240221

REACTIONS (3)
  - Injection site hypersensitivity [Unknown]
  - Rash erythematous [Unknown]
  - Injection site pain [Unknown]
